FAERS Safety Report 8731599 (Version 2)
Quarter: 2012Q4

REPORT INFORMATION
  Report Type: Spontaneous
  Country: US (occurrence: None)
  Receive Date: 20120801
  Receipt Date: 20120817
  Transmission Date: 20130627
  Serious: Yes (Hospitalization)
  Sender: FDA-Public Use
  Company Number: ACO_31221_2012

PATIENT
  Age: 61 Year
  Sex: Female

DRUGS (1)
  1. AMPYRA [Suspect]
     Indication: PRODUCT USED FOR UNKNOWN INDICATION
     Dosage: 10 MG, BID, ORAL
     Route: 048
     Dates: start: 20100728

REACTIONS (1)
  - Dyspnoea [None]
